FAERS Safety Report 5937723-9 (Version None)
Quarter: 2008Q4

REPORT INFORMATION
  Report Type: 
  Country: None (occurrence: None)
  Receive Date: 20081031
  Receipt Date: 20080915
  Transmission Date: 20090506
  Serious: Yes (Death, Life-Threatening, Hospitalization)
  Sender: FDA-Public Use
  Company Number: PL-WYE-H06605008

PATIENT
  Sex: Male

DRUGS (4)
  1. AMIODARONE HCL [Suspect]
     Dosage: OVERDOSE, DOSE UNKNOWN
     Route: 065
  2. ACETAMINOPHEN [Concomitant]
     Dosage: DOSE UNKNOWN
     Route: 065
  3. KETOPROFEN [Concomitant]
     Dosage: DOSE UNKNOWN
     Route: 065
  4. DILTIAZEM HCL [Suspect]
     Dosage: OVERDOSE, DOSE UNKNOWN
     Route: 065

REACTIONS (2)
  - COMPLETED SUICIDE [None]
  - INTENTIONAL OVERDOSE [None]
